FAERS Safety Report 8521140-1 (Version None)
Quarter: 2012Q3

REPORT INFORMATION
  Report Type: 
  Country: None (occurrence: None)
  Receive Date: 20120719
  Receipt Date: 20120716
  Transmission Date: 20120928
  Serious: Yes (Hospitalization)
  Sender: FDA-Public Use
  Company Number: DE-ELI_LILLY_AND_COMPANY-DE201203000441

PATIENT
  Age: 71 Year
  Sex: Female

DRUGS (5)
  1. FORTEO [Suspect]
     Indication: OSTEOPOROSIS
     Dosage: UNK, QD
     Route: 058
     Dates: start: 20120124
  2. MORPHINE SULFATE [Concomitant]
  3. ANTIHYPERTENSIVES [Concomitant]
  4. METOCLOPRAMIDE [Concomitant]
  5. JODETTEN [Concomitant]

REACTIONS (7)
  - DIZZINESS [None]
  - HEADACHE [None]
  - HYPOAESTHESIA [None]
  - IRON DEFICIENCY [None]
  - EPIGASTRIC DISCOMFORT [None]
  - NAUSEA [None]
  - C-REACTIVE PROTEIN INCREASED [None]
